FAERS Safety Report 12282631 (Version 1)
Quarter: 2016Q2

REPORT INFORMATION
  Report Type: Spontaneous
  Country: US (occurrence: US)
  Receive Date: 20160419
  Receipt Date: 20160419
  Transmission Date: 20160815
  Serious: Yes (Other)
  Sender: FDA-Public Use
  Company Number: US-MDT-ADR-2016-00354

PATIENT
  Age: 30 Year
  Sex: Male

DRUGS (1)
  1. COMPOUNDED BACLOFEN [Suspect]
     Active Substance: BACLOFEN
     Route: 037

REACTIONS (7)
  - Medical device site erythema [Recovered/Resolved]
  - Medical device site swelling [Recovered/Resolved]
  - Implant site infection [Recovered/Resolved]
  - Implant site extravasation [Recovered/Resolved]
  - Sinusitis [Recovered/Resolved]
  - Drug withdrawal syndrome [Recovered/Resolved]
  - Streptococcus test positive [Recovered/Resolved]
